FAERS Safety Report 7698837-9 (Version None)
Quarter: 2011Q3

REPORT INFORMATION
  Report Type: 
  Country: None (occurrence: None)
  Receive Date: 20110819
  Receipt Date: 20110816
  Transmission Date: 20111222
  Serious: No
  Sender: FDA-Public Use
  Company Number: US-TEVA-296758USA

PATIENT
  Sex: Male

DRUGS (3)
  1. SERETIDE                           /01420901/ [Concomitant]
  2. PROAIR HFA [Suspect]
     Indication: BRONCHITIS
  3. PROAIR HFA [Suspect]
     Indication: ASTHMA
     Route: 055
     Dates: start: 20090101

REACTIONS (1)
  - BREATH ALCOHOL TEST POSITIVE [None]
